FAERS Safety Report 10765083 (Version 2)
Quarter: 2015Q2

REPORT INFORMATION
  Report Type: Spontaneous
  Country: CA (occurrence: CA)
  Receive Date: 20150205
  Receipt Date: 20150429
  Transmission Date: 20150821
  Serious: Yes (Other)
  Sender: FDA-Public Use
  Company Number: CA-ROCHE-1530873

PATIENT
  Age: 78 Year
  Sex: Female

DRUGS (2)
  1. TYKERB [Suspect]
     Active Substance: LAPATINIB DITOSYLATE
     Indication: BREAST CANCER METASTATIC
     Route: 065
  2. XELODA [Suspect]
     Active Substance: CAPECITABINE
     Indication: PRODUCT USED FOR UNKNOWN INDICATION
     Route: 065

REACTIONS (8)
  - Fall [Unknown]
  - Oral mucosal blistering [Unknown]
  - Nail disorder [Unknown]
  - Fatigue [Unknown]
  - Frequent bowel movements [Unknown]
  - Hypotension [Unknown]
  - Loss of consciousness [Unknown]
  - Skin ulcer [Unknown]
